FAERS Safety Report 9396380 (Version 1)
Quarter: 2013Q3

REPORT INFORMATION
  Report Type: Spontaneous
  Country: US (occurrence: US)
  Receive Date: 20130711
  Receipt Date: 20130711
  Transmission Date: 20140515
  Serious: Yes (Hospitalization)
  Sender: FDA-Public Use
  Company Number: US-BIOGENIDEC-2013BI060828

PATIENT
  Age: 52 Year
  Sex: Female

DRUGS (2)
  1. AVONEX [Suspect]
     Indication: MULTIPLE SCLEROSIS
     Route: 030
     Dates: start: 20120423, end: 201306
  2. AVONEX [Suspect]
     Indication: MULTIPLE SCLEROSIS
     Route: 030
     Dates: start: 201306

REACTIONS (4)
  - Spinal cord compression [Recovered/Resolved with Sequelae]
  - Influenza like illness [Recovered/Resolved]
  - Muscle spasms [Not Recovered/Not Resolved]
  - Drug ineffective [Recovered/Resolved]
